FAERS Safety Report 19194545 (Version 1)
Quarter: 2021Q2

REPORT INFORMATION
  Report Type: Spontaneous
  Country: NZ (occurrence: NZ)
  Receive Date: 20210429
  Receipt Date: 20210429
  Transmission Date: 20210717
  Serious: Yes (Other)
  Sender: FDA-Public Use
  Company Number: NZ-ALVOGEN-2021-ALVOGEN-116925

PATIENT
  Age: 75 Year
  Sex: Female

DRUGS (4)
  1. COTRIMOXAZOLE [Suspect]
     Active Substance: SULFAMETHOXAZOLE\TRIMETHOPRIM
     Indication: TOXOPLASMOSIS
     Route: 048
  2. CLINDAMYCIN. [Suspect]
     Active Substance: CLINDAMYCIN
     Indication: TOXOPLASMOSIS
     Dosage: 2 INTRAVITREAL
  3. PREDNISONE. [Suspect]
     Active Substance: PREDNISONE
     Indication: TOXOPLASMOSIS
     Route: 048
  4. MYCOPHENOLATE MOFETIL. [Concomitant]
     Active Substance: MYCOPHENOLATE MOFETIL
     Indication: BIRDSHOT CHORIORETINOPATHY

REACTIONS (1)
  - Retinal detachment [Unknown]
